FAERS Safety Report 6743426-3 (Version None)
Quarter: 2010Q2

REPORT INFORMATION
  Report Type: 
  Country: None (occurrence: None)
  Receive Date: 20100527
  Receipt Date: 20100518
  Transmission Date: 20101027
  Serious: Yes (Other)
  Sender: FDA-Public Use
  Company Number: PHHY2010FR32277

PATIENT
  Age: 43 Year

DRUGS (2)
  1. CARBAMAZEPINE [Suspect]
     Dosage: UNK,UNK
  2. AMOXICILLIN [Suspect]
     Dosage: RECEIVED FROM DAY 2 TO DAY 9

REACTIONS (4)
  - DRUG RASH WITH EOSINOPHILIA AND SYSTEMIC SYMPTOMS [None]
  - INFLUENZA LIKE ILLNESS [None]
  - MALAISE [None]
  - PHARYNGITIS [None]
